FAERS Safety Report 11631212 (Version 1)
Quarter: 2015Q4

REPORT INFORMATION
  Report Type: Spontaneous
  Country: US (occurrence: US)
  Receive Date: 20151014
  Receipt Date: 20151014
  Transmission Date: 20160304
  Serious: Yes (Other)
  Sender: FDA-Public Use
  Company Number: PHEH2015US020029

PATIENT
  Age: 57 Year
  Sex: Female

DRUGS (5)
  1. RECLAST [Suspect]
     Active Substance: ZOLEDRONIC ACID
     Indication: OSTEOPOROSIS
     Dosage: UNK
     Route: 065
  2. RECLAST [Suspect]
     Active Substance: ZOLEDRONIC ACID
     Dosage: UNK
     Route: 065
  3. CALCIUM [Concomitant]
     Active Substance: CALCIUM
     Indication: PRODUCT USED FOR UNKNOWN INDICATION
     Dosage: 600 MG, UNK
     Route: 048
     Dates: start: 20150811
  4. RECLAST [Suspect]
     Active Substance: ZOLEDRONIC ACID
     Dosage: 5 MG, UNK (5 MG/100ML)
     Route: 042
     Dates: start: 20150924
  5. SALINE ORAL OTC [Concomitant]
     Active Substance: SODIUM CHLORIDE
     Indication: PRODUCT USED FOR UNKNOWN INDICATION
     Dosage: 10 UNK, UNK (10 CC)
     Route: 065

REACTIONS (23)
  - White blood cells urine positive [Unknown]
  - Injection site extravasation [Unknown]
  - Back pain [Unknown]
  - Injection site swelling [Unknown]
  - Dysphagia [Unknown]
  - Urine leukocyte esterase positive [Unknown]
  - Vitamin D deficiency [Unknown]
  - Bone density abnormal [Unknown]
  - Coeliac disease [Unknown]
  - Blood glucose increased [Unknown]
  - Hypotension [Unknown]
  - Herpes simplex [Unknown]
  - Palpitations [Unknown]
  - Dyspnoea [Unknown]
  - Jaw disorder [Unknown]
  - Urine calcium decreased [Unknown]
  - Upper respiratory tract infection [Unknown]
  - Injection site discomfort [Unknown]
  - Osteoporosis [Unknown]
  - Arthralgia [Unknown]
  - Urinary incontinence [Unknown]
  - Varicose vein [Unknown]
  - Injection site erythema [Unknown]

NARRATIVE: CASE EVENT DATE: 20150924
